FAERS Safety Report 4464042-2 (Version None)
Quarter: 2004Q4

REPORT INFORMATION
  Report Type: 
  Country: None (occurrence: None)
  Receive Date: 20041001
  Receipt Date: 20040922
  Transmission Date: 20050328
  Serious: Yes (Life-Threatening, Hospitalization, Disabling)
  Sender: FDA-Public Use
  Company Number: VE-ABBOTT-04P-178-0274707-00

PATIENT
  Sex: Female
  Weight: 52.5 kg

DRUGS (9)
  1. HUMIRA [Suspect]
     Indication: RHEUMATOID ARTHRITIS
     Route: 058
     Dates: start: 20040617
  2. METHYLPREDNISOLONE [Concomitant]
     Indication: RHEUMATOID ARTHRITIS
     Route: 048
  3. METHOTREXATE [Concomitant]
     Indication: RHEUMATOID ARTHRITIS
     Route: 030
  4. NIMESULIDE [Concomitant]
     Indication: RHEUMATOID ARTHRITIS
     Route: 048
  5. CLOPIDOGREL [Concomitant]
     Indication: PROPHYLAXIS
     Route: 048
  6. RISENDRONATE [Concomitant]
     Indication: OSTEOPOROSIS
     Route: 048
  7. CALCIUM CITRATE [Concomitant]
     Indication: OSTEOPOROSIS
     Route: 048
  8. SIMVASTATIN [Concomitant]
     Indication: DYSLIPIDAEMIA
     Route: 048
  9. AMIODARONE [Concomitant]
     Indication: ARRHYTHMIA
     Route: 048

REACTIONS (4)
  - DIZZINESS [None]
  - ISCHAEMIC STROKE [None]
  - NAUSEA [None]
  - TREMOR [None]
